FAERS Safety Report 21606851 (Version 2)
Quarter: 2022Q4

REPORT INFORMATION
  Report Type: Spontaneous
  Country: IT (occurrence: IT)
  Receive Date: 20221117
  Receipt Date: 20221117
  Transmission Date: 20230113
  Serious: Yes (Life-Threatening, Hospitalization, Other)
  Sender: FDA-Public Use
  Company Number: IT-UCBSA-2022065604

PATIENT
  Age: 2 Day
  Sex: Male

DRUGS (10)
  1. LEVETIRACETAM [Suspect]
     Active Substance: LEVETIRACETAM
     Indication: Seizure
     Dosage: 20 MILLIGRAM/KILOGRAM LOAD DOSE
  2. LEVETIRACETAM [Suspect]
     Active Substance: LEVETIRACETAM
     Dosage: 60 MILLIGRAM/KILOGRAM, ONCE DAILY (QD) MAINTENANCE DOSE
  3. FENTANYL [Suspect]
     Active Substance: FENTANYL
     Indication: Hypoxic-ischaemic encephalopathy
     Dosage: 1 MICROGRAM/KILOGRAM, HOURLY
  4. FENTANYL [Suspect]
     Active Substance: FENTANYL
     Dosage: 3 MICROGRAM/KILOGRAM, HOURLY
  5. MIDAZOLAM [Suspect]
     Active Substance: MIDAZOLAM
     Indication: Seizure
     Dosage: 0.24 MILLIGRAM/KILOGRAM, HOURLY PROGRESSIVELY REDUCED
  6. MIDAZOLAM [Suspect]
     Active Substance: MIDAZOLAM
     Dosage: PROGRESSIVELY REDUCED
  7. MIDAZOLAM [Suspect]
     Active Substance: MIDAZOLAM
     Dosage: 0.24 MILLIGRAM/KILOGRAM, HOURLY
  8. PHENOBARBITAL [Suspect]
     Active Substance: PHENOBARBITAL
     Indication: Seizure
     Dosage: 5 MILLIGRAM/KILOGRAM, ONCE DAILY (QD) MAINTENANCE DOSE
  9. PHENOBARBITAL [Suspect]
     Active Substance: PHENOBARBITAL
     Dosage: 20 MILLIGRAM/KILOGRAM LOAD DOSE
  10. EPINEPHRINE [Concomitant]
     Active Substance: EPINEPHRINE
     Indication: Heart rate abnormal
     Dosage: UNK

REACTIONS (2)
  - Coma neonatal [Recovered/Resolved]
  - Electroencephalogram abnormal [Recovered/Resolved]
